FAERS Safety Report 25176089 (Version 1)
Quarter: 2025Q2

REPORT INFORMATION
  Report Type: Spontaneous
  Country: FR (occurrence: FR)
  Receive Date: 20250409
  Receipt Date: 20250409
  Transmission Date: 20250716
  Serious: Yes (Hospitalization)
  Sender: AUROBINDO
  Company Number: FR-AFSSAPS-CN2025000255

PATIENT
  Age: 72 Year
  Sex: Female
  Weight: 66 kg

DRUGS (3)
  1. NAPROXEN [Interacting]
     Active Substance: NAPROXEN
     Indication: Back pain
     Dosage: 1100 MILLIGRAM, ONCE A DAY(550MG 2 TIMES A DAY)
     Route: 048
     Dates: start: 202502, end: 202502
  2. TERALITHE [Interacting]
     Active Substance: LITHIUM CARBONATE
     Indication: Bipolar disorder
     Dosage: 800 MILLIGRAM, ONCE A DAY
     Route: 048
     Dates: start: 2018, end: 20250225
  3. OXAZEPAM [Concomitant]
     Active Substance: OXAZEPAM
     Indication: Product used for unknown indication
     Dosage: 10 MILLIGRAM, ONCE A DAY( 10MG IN THE EVENING)
     Route: 048
     Dates: start: 2018

REACTIONS (5)
  - Accidental overdose [Recovered/Resolved]
  - Drug interaction [Recovered/Resolved]
  - Disorientation [Recovered/Resolved]
  - Decreased appetite [Recovered/Resolved]
  - Tremor [Recovered/Resolved]

NARRATIVE: CASE EVENT DATE: 20250201
